FAERS Safety Report 6345374-X (Version None)
Quarter: 2009Q3

REPORT INFORMATION
  Report Type: 
  Country: None (occurrence: None)
  Receive Date: 20090909
  Receipt Date: 20080909
  Transmission Date: 20100115
  Serious: No
  Sender: FDA-Public Use
  Company Number: US-TYCO HEALTHCARE/MALLINCKRODT-T200801487

PATIENT

DRUGS (2)
  1. SODIUM IODIDE I 131 [Suspect]
     Dosage: 50 MCI, UNK
  2. SODIUM IODIDE I 131 [Suspect]
     Dosage: 17 MCI, UNK

REACTIONS (1)
  - ARTHRALGIA [None]
